FAERS Safety Report 13427205 (Version 1)
Quarter: 2017Q2

REPORT INFORMATION
  Report Type: Spontaneous
  Country: US (occurrence: US)
  Receive Date: 20170411
  Receipt Date: 20170411
  Transmission Date: 20170830
  Serious: Yes (Other)
  Sender: FDA-Public Use
  Company Number: US-ENDO PHARMACEUTICALS INC-2017-001707

PATIENT
  Sex: Male

DRUGS (1)
  1. XIAFLEX [Suspect]
     Active Substance: COLLAGENASE CLOSTRIDIUM HISTOLYTICUM
     Indication: PEYRONIE^S DISEASE
     Dosage: CYCLE ONE INJECTION ONE; ^ADMINISTERED AS PRESCRIBED^
     Route: 065
     Dates: start: 201703

REACTIONS (5)
  - Penile swelling [Recovering/Resolving]
  - Skin wrinkling [Recovering/Resolving]
  - Genital swelling [Recovering/Resolving]
  - Skin tightness [Recovering/Resolving]
  - Penile contusion [Recovering/Resolving]

NARRATIVE: CASE EVENT DATE: 2017
